FAERS Safety Report 15345785 (Version 2)
Quarter: 2019Q4

REPORT INFORMATION
  Report Type: Spontaneous
  Country: CA (occurrence: CA)
  Receive Date: 20180904
  Receipt Date: 20191119
  Transmission Date: 20200122
  Serious: Yes (Hospitalization)
  Sender: FDA-Public Use
  Company Number: CA-ROCHE-2177341

PATIENT
  Age: 51 Year
  Sex: Female

DRUGS (14)
  1. HYDROXYCHLOROQUINE [Suspect]
     Active Substance: HYDROXYCHLOROQUINE
     Indication: PRODUCT USED FOR UNKNOWN INDICATION
     Route: 065
  2. METHOTREXATE SODIUM. [Suspect]
     Active Substance: METHOTREXATE SODIUM
     Indication: RHEUMATOID ARTHRITIS
     Route: 058
  3. ZOSTAVAX [Suspect]
     Active Substance: VARICELLA-ZOSTER VIRUS STRAIN OKA/MERCK LIVE ANTIGEN
     Indication: PRODUCT USED FOR UNKNOWN INDICATION
     Route: 058
  4. CELEBREX [Concomitant]
     Active Substance: CELECOXIB
     Route: 048
  5. ISONIAZID. [Suspect]
     Active Substance: ISONIAZID
     Indication: PROPHYLAXIS
     Route: 065
  6. SULFASALAZINE. [Suspect]
     Active Substance: SULFASALAZINE
     Indication: RHEUMATOID ARTHRITIS
     Route: 048
  7. GOLD [Suspect]
     Active Substance: GOLD
     Indication: PRODUCT USED FOR UNKNOWN INDICATION
     Route: 030
  8. REMICADE [Suspect]
     Active Substance: INFLIXIMAB
     Dosage: THERAPY DURATION: 1.0 DAY(S)
     Route: 042
  9. ACTEMRA [Suspect]
     Active Substance: TOCILIZUMAB
     Indication: PRODUCT USED FOR UNKNOWN INDICATION
     Route: 065
  10. REMICADE [Suspect]
     Active Substance: INFLIXIMAB
     Dosage: THERAPY DURATION: 1.0 DAY(S)
     Route: 042
  11. PLAQUENIL [Suspect]
     Active Substance: HYDROXYCHLOROQUINE SULFATE
     Indication: PRODUCT USED FOR UNKNOWN INDICATION
     Dosage: EVERY 1 DAY(S)
     Route: 048
  12. ARAVA [Suspect]
     Active Substance: LEFLUNOMIDE
     Indication: PRODUCT USED FOR UNKNOWN INDICATION
     Route: 065
  13. MYOCHRYSINE [Suspect]
     Active Substance: GOLD SODIUM THIOMALATE
     Indication: PRODUCT USED FOR UNKNOWN INDICATION
     Route: 030
  14. REMICADE [Suspect]
     Active Substance: INFLIXIMAB
     Indication: PRODUCT USED FOR UNKNOWN INDICATION
     Route: 042

REACTIONS (18)
  - Hepatitis B core antibody positive [Unknown]
  - Joint swelling [Unknown]
  - Headache [Unknown]
  - Hepatic cyst [Unknown]
  - Abdominal pain upper [Unknown]
  - Microcytic anaemia [Unknown]
  - Drug ineffective [Unknown]
  - Lymphadenopathy [Unknown]
  - Renal cyst [Unknown]
  - Pneumonia cryptococcal [Unknown]
  - Mouth ulceration [Unknown]
  - Neutropenia [Unknown]
  - Pulmonary mass [Unknown]
  - Pyrexia [Unknown]
  - Hepatic lesion [Unknown]
  - Escherichia urinary tract infection [Unknown]
  - Fungal infection [Unknown]
  - Hepatic haematoma [Unknown]
